FAERS Safety Report 8889624 (Version 1)
Quarter: 2012Q4

REPORT INFORMATION
  Report Type: 
  Country: GB (occurrence: GB)
  Receive Date: 20121107
  Receipt Date: 20121107
  Transmission Date: 20130627
  Serious: Yes (Hospitalization)
  Sender: FDA-Public Use
  Company Number: PHHY2012GB100044

PATIENT
  Age: 55 Year
  Sex: Female
  Weight: 82 kg

DRUGS (4)
  1. METHOTREXATE [Suspect]
     Indication: RHEUMATOID ARTHRITIS
     Dosage: 10 mg, QW
     Route: 058
     Dates: start: 20030922, end: 20121019
  2. CERTOLIZUMAB [Suspect]
     Indication: RHEUMATOID ARTHRITIS
     Dosage: 200 mg, BIW
     Route: 058
     Dates: start: 20120802, end: 20121024
  3. LEVOTHYROXINE [Concomitant]
     Dosage: 50 ug, once
     Route: 048
     Dates: start: 20050424
  4. SIMVASTATIN [Concomitant]
     Dosage: 40 mg, once
     Route: 048
     Dates: start: 200806

REACTIONS (3)
  - Dyspnoea [Not Recovered/Not Resolved]
  - Crepitations [Unknown]
  - Cough [Unknown]
